FAERS Safety Report 10589427 (Version 1)
Quarter: 2014Q4

REPORT INFORMATION
  Report Type: Spontaneous
  Country: FR (occurrence: FR)
  Receive Date: 20141118
  Receipt Date: 20141118
  Transmission Date: 20150529
  Serious: Yes (Hospitalization)
  Sender: FDA-Public Use
  Company Number: FR-SA-2014SA154505

PATIENT
  Age: 76 Year
  Sex: Female

DRUGS (10)
  1. PRADAXA [Concomitant]
     Active Substance: DABIGATRAN ETEXILATE MESYLATE
  2. SEROPLEX [Concomitant]
     Active Substance: ESCITALOPRAM OXALATE
  3. LEVOTHYROX [Concomitant]
     Active Substance: LEVOTHYROXINE
  4. NEORECORMON [Concomitant]
     Active Substance: ERYTHROPOIETIN
  5. REMICADE [Suspect]
     Active Substance: INFLIXIMAB
     Indication: GRANULOMA
     Route: 042
     Dates: start: 201407, end: 201408
  6. LASILIX [Suspect]
     Active Substance: FUROSEMIDE
     Indication: ESSENTIAL HYPERTENSION
     Dosage: DOSE: ( 40 MG, 2 DAYS )
     Route: 048
     Dates: start: 2010
  7. CORTANCYL [Concomitant]
     Active Substance: PREDNISONE
  8. HEMIGOXINE NATIVELLE [Concomitant]
     Active Substance: DIGOXIN
  9. ZOLPIDEM [Concomitant]
     Active Substance: ZOLPIDEM\ZOLPIDEM TARTRATE
  10. APROVEL [Concomitant]
     Active Substance: IRBESARTAN

REACTIONS (1)
  - Neurosensory hypoacusis [Recovering/Resolving]

NARRATIVE: CASE EVENT DATE: 20140903
